FAERS Safety Report 7288555-3 (Version None)
Quarter: 2011Q1

REPORT INFORMATION
  Report Type: 
  Country: None (occurrence: None)
  Receive Date: 20110201
  Receipt Date: 20110117
  Transmission Date: 20110831
  Serious: Yes (Hospitalization, Disabling)
  Sender: FDA-Public Use
  Company Number: 1000017208

PATIENT
  Age: 56 Year
  Sex: Female
  Weight: 64 kg

DRUGS (4)
  1. CIBADREX (BENAZEPRIL) (TABLETS) (BENAZEPRIL) [Concomitant]
  2. ESCITALOPRAM [Suspect]
     Indication: DEPRESSION
     Dosage: 280 MG, ONCE, ORAL
     Route: 048
     Dates: start: 20101014, end: 20101014
  3. LOXEN (NICARDIPINE HYDROCHLORIDE) (TABLETS) (NICARDIPINE HYDROCHLORIDE [Concomitant]
  4. SELOKEN (METOPROLOL TARTRATE) (TABLETS) (METOPROLOL TARTRATE) [Concomitant]

REACTIONS (3)
  - ANGLE CLOSURE GLAUCOMA [None]
  - SOMNOLENCE [None]
  - INTENTIONAL OVERDOSE [None]
